FAERS Safety Report 8056065-1 (Version None)
Quarter: 2012Q1

REPORT INFORMATION
  Report Type: 
  Country: None (occurrence: None)
  Receive Date: 20120119
  Receipt Date: 20120110
  Transmission Date: 20120608
  Serious: Yes (Other)
  Sender: FDA-Public Use
  Company Number: JP-JNJFOC-20111207778

PATIENT
  Age: 69 Year
  Sex: Male

DRUGS (6)
  1. RISPERDAL [Suspect]
     Indication: SCHIZOPHRENIA
     Route: 048
  2. AMLODIPINE [Concomitant]
     Route: 048
  3. SARPOGRELATE HYDROCHLORIDE [Concomitant]
     Route: 048
  4. LASIX [Concomitant]
     Route: 048
  5. SIMVASTATIN [Concomitant]
     Route: 048
  6. CARVEDILOL [Concomitant]
     Route: 048

REACTIONS (1)
  - FLOPPY IRIS SYNDROME [None]
